FAERS Safety Report 4576109-9 (Version None)
Quarter: 2005Q1

REPORT INFORMATION
  Report Type: 
  Country: None (occurrence: None)
  Receive Date: 20050209
  Receipt Date: 20041102
  Transmission Date: 20050727
  Serious: Yes (Hospitalization)
  Sender: FDA-Public Use
  Company Number: PHEH2004US11879

PATIENT
  Age: 74 Year
  Sex: Female

DRUGS (13)
  1. HIGH FIBER DIET [Concomitant]
  2. STOOL SOFTENER [Concomitant]
  3. VERAPAMIL HYDROCHLORIDE [Concomitant]
  4. ATACAND [Concomitant]
  5. CRESTOR [Concomitant]
  6. DIGOXIN [Concomitant]
  7. ACCUPRIL [Concomitant]
  8. RELAFEN [Concomitant]
  9. ZELNORM [Suspect]
     Indication: IRRITABLE BOWEL SYNDROME
     Dosage: 6 MG, BID
     Route: 048
     Dates: start: 20040505
  10. ZELNORM [Suspect]
     Dosage: 6 MG, BID
     Route: 048
     Dates: end: 20041102
  11. ZELNORM [Suspect]
     Dosage: 6 MG, QD
     Route: 048
  12. ZELNORM [Suspect]
     Dosage: 6 MG, BID
     Route: 048
     Dates: start: 20041026, end: 20041028
  13. SYNTHROID [Concomitant]

REACTIONS (15)
  - ABDOMINAL PAIN [None]
  - ALANINE AMINOTRANSFERASE INCREASED [None]
  - ASPARTATE AMINOTRANSFERASE INCREASED [None]
  - COLITIS [None]
  - COLITIS ISCHAEMIC [None]
  - COLONOSCOPY ABNORMAL [None]
  - COMPUTERISED TOMOGRAM ABDOMEN ABNORMAL [None]
  - CONSTIPATION [None]
  - DIARRHOEA [None]
  - DIVERTICULUM INTESTINAL [None]
  - GASTROINTESTINAL HAEMORRHAGE [None]
  - HAEMATOCHEZIA [None]
  - HAEMORRHOIDS [None]
  - TRANSAMINASES INCREASED [None]
  - WHITE BLOOD CELL COUNT INCREASED [None]
